FAERS Safety Report 6658735-6 (Version None)
Quarter: 2010Q1

REPORT INFORMATION
  Report Type: 
  Country: None (occurrence: None)
  Receive Date: 20100326
  Receipt Date: 20100326
  Transmission Date: 20100710
  Serious: Yes (Hospitalization)
  Sender: FDA-Public Use
  Company Number: IMP_04925_2010

PATIENT
  Age: 61 Year
  Sex: Female

DRUGS (10)
  1. BACLOFEN [Suspect]
     Indication: BACK PAIN
     Dosage: (5MG TID ORAL)
     Route: 048
  2. BACLOFEN [Suspect]
     Indication: MUSCLE SPASMS
     Dosage: (5MG TID ORAL)
     Route: 048
  3. HYDROMORPHONE HCL [Concomitant]
  4. PREGABALIN [Concomitant]
  5. AMITRIPTYLINE HCL [Concomitant]
  6. LORAZEPAM [Concomitant]
  7. IRBESARTAN [Concomitant]
  8. REPAGLINIDE [Concomitant]
  9. VANCOMYCIN [Concomitant]
  10. ANALGESICS [Concomitant]

REACTIONS (4)
  - DEPRESSED LEVEL OF CONSCIOUSNESS [None]
  - DISORIENTATION [None]
  - HAEMODIALYSIS [None]
  - THERAPEUTIC AGENT TOXICITY [None]
